FAERS Safety Report 4442675-7 (Version None)
Quarter: 2004Q3

REPORT INFORMATION
  Report Type: 
  Country: None (occurrence: None)
  Receive Date: 20040903
  Receipt Date: 20040618
  Transmission Date: 20050211
  Serious: Yes (Other)
  Sender: FDA-Public Use
  Company Number: 2004UW12775

PATIENT
  Age: 73 Year
  Sex: Female
  Weight: 70.3075 kg

DRUGS (9)
  1. CRESTOR [Suspect]
     Indication: BLOOD CHOLESTEROL INCREASED
  2. AMITRIPTYLINE HCL [Suspect]
  3. FOSAMAX [Concomitant]
  4. ATENOLOL [Concomitant]
  5. LEVOXYL [Concomitant]
  6. ESTRADIOL [Concomitant]
  7. NEURONTIN [Concomitant]
  8. HYDROCODONE [Concomitant]
  9. ASPIRIN [Concomitant]

REACTIONS (1)
  - HYPERHIDROSIS [None]
